FAERS Safety Report 11410240 (Version 2)
Quarter: 2015Q3

REPORT INFORMATION
  Report Type: Spontaneous
  Country: US (occurrence: US)
  Receive Date: 20150824
  Receipt Date: 20150904
  Transmission Date: 20151125
  Serious: No
  Sender: FDA-Public Use
  Company Number: US-VERTEX PHARMACEUTICALS-2015-003290

PATIENT
  Age: 35 Year
  Sex: Male

DRUGS (6)
  1. CREON [Concomitant]
     Active Substance: PANCRELIPASE AMYLASE\PANCRELIPASE LIPASE\PANCRELIPASE PROTEASE
     Indication: CYSTIC FIBROSIS
  2. SODIUM [Concomitant]
     Active Substance: SODIUM
     Indication: CYSTIC FIBROSIS
     Route: 055
  3. PULMOZYME [Concomitant]
     Active Substance: DORNASE ALFA
     Indication: CYSTIC FIBROSIS
  4. ORKAMBI [Suspect]
     Active Substance: IVACAFTOR\LUMACAFTOR
     Indication: CYSTIC FIBROSIS
     Dosage: 2 DF, BID
     Route: 048
     Dates: start: 201508
  5. TOBRAMYCIN. [Concomitant]
     Active Substance: TOBRAMYCIN
     Indication: CYSTIC FIBROSIS
  6. ALBUTEROL. [Concomitant]
     Active Substance: ALBUTEROL
     Indication: CYSTIC FIBROSIS
     Route: 055

REACTIONS (1)
  - Dyspnoea [Recovered/Resolved]

NARRATIVE: CASE EVENT DATE: 20150810
